FAERS Safety Report 5690938-X (Version None)
Quarter: 2008Q2

REPORT INFORMATION
  Report Type: 
  Country: None (occurrence: None)
  Receive Date: 20080401
  Receipt Date: 20080326
  Transmission Date: 20081010
  Serious: Yes (Hospitalization)
  Sender: FDA-Public Use
  Company Number: US-SANOFI-SYNTHELABO-A03200801243

PATIENT
  Sex: Female

DRUGS (2)
  1. AMBIEN [Suspect]
     Indication: INSOMNIA
     Dosage: UNK
     Route: 048
     Dates: start: 20070101, end: 20070101
  2. AMBIEN CR [Suspect]
     Indication: INSOMNIA
     Dosage: UNK
     Route: 048
     Dates: start: 20070101, end: 20071201

REACTIONS (8)
  - AMNESIA [None]
  - CEREBROVASCULAR ACCIDENT [None]
  - DIPLOPIA [None]
  - DRUG INEFFECTIVE [None]
  - DYSARTHRIA [None]
  - DYSKINESIA [None]
  - GAIT DISTURBANCE [None]
  - LOSS OF CONSCIOUSNESS [None]
